FAERS Safety Report 6757606-4 (Version None)
Quarter: 2010Q2

REPORT INFORMATION
  Report Type: 
  Country: None (occurrence: None)
  Receive Date: 20100607
  Receipt Date: 20100601
  Transmission Date: 20101027
  Serious: Yes (Hospitalization)
  Sender: FDA-Public Use
  Company Number: FR-KINGPHARMUSA00001-K201000668

PATIENT
  Age: 89 Year
  Sex: Male

DRUGS (9)
  1. ALTACE [Suspect]
     Indication: HYPERTENSION
     Dosage: 1.25 MG, QD
     Route: 048
     Dates: end: 20100412
  2. LASIX [Suspect]
     Indication: ACUTE PULMONARY OEDEMA
     Dosage: 125 MG, QD
     Route: 042
     Dates: start: 20100405, end: 20100406
  3. LASIX [Suspect]
     Dosage: 40 MG, QD
     Route: 042
     Dates: start: 20100406, end: 20100409
  4. LASIX [Suspect]
     Dosage: UNK
     Route: 048
     Dates: start: 20100410
  5. KARDEGIC [Concomitant]
  6. PLAVIX [Concomitant]
  7. PRAVASTATIN SODIUM [Concomitant]
  8. ZYLORIC [Concomitant]
  9. TEMERIT [Concomitant]

REACTIONS (2)
  - DRUG INTERACTION [None]
  - RENAL FAILURE ACUTE [None]
